FAERS Safety Report 7596010-6 (Version None)
Quarter: 2011Q3

REPORT INFORMATION
  Report Type: 
  Country: None (occurrence: None)
  Receive Date: 20110707
  Receipt Date: 20110629
  Transmission Date: 20111222
  Serious: Yes (Other)
  Sender: FDA-Public Use
  Company Number: PHHY2011US39731

PATIENT
  Sex: Female

DRUGS (9)
  1. GILENYA [Suspect]
     Dosage: 0.5 MG, QD
     Route: 048
     Dates: start: 20110131
  2. COENZYME Q10 [Concomitant]
  3. MULTI-VITAMINS [Concomitant]
  4. AMITRIPTYLINE HCL [Concomitant]
     Dosage: 20 MG, UNK
  5. CALCIUM CARBONATE [Concomitant]
     Dosage: 1200 MG, QD
  6. GABAPENTIN [Concomitant]
     Dosage: 600 MG, UNK
  7. GILENYA [Suspect]
     Dosage: 0.5 MG, QD
     Route: 048
     Dates: start: 20110208, end: 20110406
  8. VITAMIN D [Concomitant]
     Dosage: 2000 UKN, UNK
  9. ASPIRIN [Concomitant]

REACTIONS (15)
  - DYSPNOEA [None]
  - DIARRHOEA [None]
  - VERTIGO [None]
  - DIZZINESS [None]
  - ASTHMA [None]
  - HYPOVENTILATION [None]
  - SYNCOPE [None]
  - LYMPHOPENIA [None]
  - CHEST PAIN [None]
  - CONSTIPATION [None]
  - VISION BLURRED [None]
  - CHEST DISCOMFORT [None]
  - ABDOMINAL DISCOMFORT [None]
  - PAIN IN EXTREMITY [None]
  - TACHYCARDIA [None]
